FAERS Safety Report 5867513-7 (Version None)
Quarter: 2008Q3

REPORT INFORMATION
  Report Type: 
  Country: None (occurrence: None)
  Receive Date: 20080902
  Receipt Date: 20070814
  Transmission Date: 20090109
  Serious: No
  Sender: FDA-Public Use
  Company Number: US-ABBOTT-07P-163-0377926-00

PATIENT
  Sex: Female
  Weight: 68.1 kg

DRUGS (10)
  1. DEPAKOTE ER [Suspect]
     Indication: DEPRESSION
     Route: 048
  2. DEPAKOTE ER [Suspect]
     Route: 048
  3. DEPAKOTE ER [Suspect]
     Route: 048
  4. VENLAFAXINE HCL [Suspect]
     Indication: DEPRESSION
     Route: 048
  5. ALENDRONATE SODIUM [Concomitant]
     Indication: OSTEOPOROSIS
  6. CELECOXIB [Concomitant]
     Indication: ARTHRITIS
  7. LEVOTHYROXINE SODIUM [Concomitant]
     Indication: HYPOTHYROIDISM
  8. DETROL LA [Concomitant]
     Indication: INCONTINENCE
  9. LORAZEPAM [Concomitant]
     Indication: DRUG USE FOR UNKNOWN INDICATION
  10. TEMAZEPAM [Concomitant]
     Indication: DRUG USE FOR UNKNOWN INDICATION

REACTIONS (3)
  - DEPRESSED LEVEL OF CONSCIOUSNESS [None]
  - HYPERSOMNIA [None]
  - HYPOKINESIA [None]
